FAERS Safety Report 5655947-5 (Version None)
Quarter: 2008Q1

REPORT INFORMATION
  Report Type: 
  Country: None (occurrence: None)
  Receive Date: 20080307
  Receipt Date: 20080306
  Transmission Date: 20080703
  Serious: Yes (Hospitalization, Other)
  Sender: FDA-Public Use
  Company Number: NZ-BOEHRINGER INGELHEIM GMBH, GERMANY-2008-DE-01418GD

PATIENT
  Age: 44 Year
  Sex: Male

DRUGS (8)
  1. MORPHINE [Suspect]
     Route: 042
  2. METOPROLOL SUCCINATE [Suspect]
     Indication: SINUS TACHYCARDIA
  3. ACETAMINOPHEN [Concomitant]
  4. METHADONE HCL [Concomitant]
     Indication: DRUG WITHDRAWAL MAINTENANCE THERAPY
     Route: 048
  5. MEROPENEM [Concomitant]
     Route: 042
  6. AMITRIPTYLINE HCL [Concomitant]
  7. ONDANSETRON [Concomitant]
  8. OMEPRAZOLE [Concomitant]

REACTIONS (10)
  - ANAEMIA [None]
  - DRUG ABUSE [None]
  - EMPYEMA [None]
  - ENDOCARDITIS BACTERIAL [None]
  - ENTEROBACTER INFECTION [None]
  - HYPERKALAEMIA [None]
  - LEUKOCYTOSIS [None]
  - RESPIRATORY ACIDOSIS [None]
  - RESPIRATORY FAILURE [None]
  - SINUS TACHYCARDIA [None]
